FAERS Safety Report 20858224 (Version 1)
Quarter: 2022Q2

REPORT INFORMATION
  Report Type: Spontaneous
  Country: US (occurrence: US)
  Receive Date: 20220521
  Receipt Date: 20220521
  Transmission Date: 20220721
  Serious: No
  Sender: FDA-Public Use
  Company Number: US-009507513-2205USA004159

PATIENT
  Age: 70 Year
  Sex: Female

DRUGS (5)
  1. KEYTRUDA [Suspect]
     Active Substance: PEMBROLIZUMAB
     Dosage: 200MG EVERY 3 WEEKS, 1 CYCLE
     Route: 042
     Dates: start: 20220303, end: 20220303
  2. KEYTRUDA [Suspect]
     Active Substance: PEMBROLIZUMAB
     Dosage: 200MG EVERY 3 WEEKS, 4 CYCLE
     Route: 042
     Dates: start: 20220512, end: 20220512
  3. PFIZER-BIONTECH COVID-19 VACCINE [Suspect]
     Active Substance: TOZINAMERAN
     Indication: Prophylaxis
     Dosage: 1ST DOSE
     Dates: start: 202112
  4. PFIZER-BIONTECH COVID-19 VACCINE [Suspect]
     Active Substance: TOZINAMERAN
     Dosage: 2ND DOSE
     Dates: start: 202201
  5. PFIZER-BIONTECH COVID-19 VACCINE [Suspect]
     Active Substance: TOZINAMERAN
     Dosage: 1ST BOOSTER
     Dates: start: 202203

REACTIONS (6)
  - Infusion site coldness [Recovered/Resolved]
  - Infusion site paraesthesia [Recovered/Resolved]
  - Vascular access site complication [Recovered/Resolved]
  - Infusion site pain [Not Recovered/Not Resolved]
  - Vaccination site pain [Unknown]
  - Product administered at inappropriate site [Unknown]

NARRATIVE: CASE EVENT DATE: 20220512
